FAERS Safety Report 22039662 (Version 1)
Quarter: 2023Q1

REPORT INFORMATION
  Report Type: Spontaneous
  Country: US (occurrence: None)
  Receive Date: 20230226
  Receipt Date: 20230226
  Transmission Date: 20230417
  Serious: Yes (Hospitalization)
  Sender: FDA-Public Use
  Company Number: None

PATIENT
  Age: 65 Year
  Sex: Male

DRUGS (9)
  1. TACROLIMUS [Suspect]
     Active Substance: TACROLIMUS
     Indication: Renal transplant
     Dosage: FREQUENCY : DAILY;?
     Route: 048
     Dates: start: 20190531
  2. MYCOPHENOLATE MOFETIL [Suspect]
     Active Substance: MYCOPHENOLATE MOFETIL
     Indication: Renal transplant
     Dosage: FREQUENCY : TWICE A DAY;?
     Route: 048
     Dates: start: 20190531
  3. TAMSULOSIN [Concomitant]
     Active Substance: TAMSULOSIN
  4. MAGNESIUM OXIDE 400MG [Concomitant]
     Active Substance: MAGNESIUM OXIDE
  5. PREDNISONE [Concomitant]
     Active Substance: PREDNISONE
  6. bumetanide 2mg [Concomitant]
  7. LINZESS [Concomitant]
     Active Substance: LINACLOTIDE
  8. Metoprolol succ ER 25mg [Concomitant]
  9. WARFARIN [Concomitant]
     Active Substance: WARFARIN

REACTIONS (3)
  - Asthenia [None]
  - Rehabilitation therapy [None]
  - Unevaluable event [None]

NARRATIVE: CASE EVENT DATE: 20230224
